FAERS Safety Report 5555494-5 (Version None)
Quarter: 2007Q4

REPORT INFORMATION
  Report Type: 
  Country: None (occurrence: None)
  Receive Date: 20071213
  Receipt Date: 20070820
  Transmission Date: 20080405
  Serious: No
  Sender: FDA-Public Use
  Company Number: US-AMGEN-KDL239490

PATIENT
  Sex: Male

DRUGS (2)
  1. ENBREL [Suspect]
     Indication: PSORIASIS
     Route: 058
     Dates: start: 20040223
  2. SORIATANE [Concomitant]

REACTIONS (4)
  - EAR PAIN [None]
  - PAIN IN JAW [None]
  - PSORIASIS [None]
  - SINUSITIS [None]
